FAERS Safety Report 20088392 (Version 1)
Quarter: 2021Q4

REPORT INFORMATION
  Report Type: Spontaneous
  Country: US (occurrence: None)
  Receive Date: 20211118
  Receipt Date: 20211118
  Transmission Date: 20220304
  Serious: No
  Sender: FDA-Public Use
  Company Number: 2021A800853

PATIENT
  Age: 26110 Day
  Sex: Female

DRUGS (1)
  1. SYMBICORT [Suspect]
     Active Substance: BUDESONIDE\FORMOTEROL FUMARATE DIHYDRATE
     Dosage: 160/4.5 MCG, UNKNOWN FREQUENCY UNKNOWN
     Route: 055

REACTIONS (4)
  - Oral contusion [Unknown]
  - Intentional device misuse [Unknown]
  - Product taste abnormal [Unknown]
  - Device defective [Unknown]

NARRATIVE: CASE EVENT DATE: 20211108
